FAERS Safety Report 8474196-9 (Version None)
Quarter: 2012Q2

REPORT INFORMATION
  Report Type: 
  Country: None (occurrence: None)
  Receive Date: 20120628
  Receipt Date: 20120625
  Transmission Date: 20120825
  Serious: No
  Sender: FDA-Public Use
  Company Number: US-PFIZER INC-2012153038

PATIENT
  Sex: Female
  Weight: 58.957 kg

DRUGS (2)
  1. LYRICA [Suspect]
     Indication: FIBROMYALGIA
     Dosage: UNK
     Dates: start: 20120601
  2. LYRICA [Suspect]
     Indication: PAIN

REACTIONS (5)
  - DRUG INEFFECTIVE [None]
  - MALAISE [None]
  - DIZZINESS [None]
  - IMPAIRED DRIVING ABILITY [None]
  - FEELING ABNORMAL [None]
